FAERS Safety Report 22160257 (Version 1)
Quarter: 2023Q1

REPORT INFORMATION
  Report Type: Spontaneous
  Country: BG (occurrence: BG)
  Receive Date: 20230331
  Receipt Date: 20230331
  Transmission Date: 20230418
  Serious: Yes (Other)
  Sender: FDA-Public Use
  Company Number: BG-ASTELLAS-2023US009952

PATIENT
  Age: 67 Year
  Sex: Male

DRUGS (3)
  1. ELIGARD [Suspect]
     Active Substance: LEUPROLIDE ACETATE
     Indication: Product used for unknown indication
     Route: 065
     Dates: start: 201606, end: 201807
  2. ENZALUTAMIDE [Suspect]
     Active Substance: ENZALUTAMIDE
     Indication: Hormone-refractory prostate cancer
     Dosage: 4 DF, ONCE DAILY (160 MG ONCE DAILY FOR EVERY 28 DAYS)
     Route: 065
     Dates: start: 201905
  3. ENZALUTAMIDE [Suspect]
     Active Substance: ENZALUTAMIDE
     Indication: Prostate cancer metastatic

REACTIONS (2)
  - Prostate cancer [Unknown]
  - Bone lesion [Unknown]

NARRATIVE: CASE EVENT DATE: 20190401
